FAERS Safety Report 4746816-3 (Version None)
Quarter: 2005Q3

REPORT INFORMATION
  Report Type: 
  Country: None (occurrence: None)
  Receive Date: 20050817
  Receipt Date: 20020321
  Transmission Date: 20060218
  Serious: Yes (Death, Hospitalization, Other)
  Sender: FDA-Public Use
  Company Number: US-AMGEN-02030618

PATIENT
  Sex: Female
  Weight: 64.41 kg

DRUGS (9)
  1. ENBREL [Suspect]
     Indication: RHEUMATOID ARTHRITIS
     Route: 058
     Dates: start: 20000828, end: 20010801
  2. ENBREL [Suspect]
  3. METOPROLOL SUCCINATE [Concomitant]
  4. PREMARIN [Concomitant]
  5. PREDNISONE [Concomitant]
  6. FUROSEMIDE [Concomitant]
  7. LORAZEPAM [Concomitant]
  8. LEFLUNOMIDE [Concomitant]
     Dates: start: 20000128, end: 20010416
  9. LEFLUNOMIDE [Concomitant]
     Dates: start: 20010801, end: 20010801

REACTIONS (7)
  - CONDITION AGGRAVATED [None]
  - CUTANEOUS VASCULITIS [None]
  - DEEP VEIN THROMBOSIS [None]
  - DIFFUSE LARGE B-CELL LYMPHOMA [None]
  - GROIN INFECTION [None]
  - MALIGNANT NEOPLASM PROGRESSION [None]
  - STAPHYLOCOCCAL INFECTION [None]
